FAERS Safety Report 18942450 (Version 2)
Quarter: 2021Q3

REPORT INFORMATION
  Report Type: Spontaneous
  Country: US (occurrence: US)
  Receive Date: 20210225
  Receipt Date: 20210713
  Transmission Date: 20211014
  Serious: Yes (Other)
  Sender: FDA-Public Use
  Company Number: US-PFIZER INC-2021170605

PATIENT
  Age: 24 Year
  Sex: Female
  Weight: 95.25 kg

DRUGS (1)
  1. CHANTIX [Suspect]
     Active Substance: VARENICLINE TARTRATE
     Indication: SMOKING CESSATION THERAPY
     Dosage: 1 MG, 2X/DAY
     Dates: start: 2015

REACTIONS (7)
  - Fatigue [Not Recovered/Not Resolved]
  - Headache [Unknown]
  - Multiple sclerosis [Not Recovered/Not Resolved]
  - Colitis ulcerative [Unknown]
  - Nausea [Not Recovered/Not Resolved]
  - Lethargy [Not Recovered/Not Resolved]
  - Loss of dreaming [Not Recovered/Not Resolved]

NARRATIVE: CASE EVENT DATE: 201705
